FAERS Safety Report 17449060 (Version 2)
Quarter: 2021Q1

REPORT INFORMATION
  Report Type: Report from Study
  Country: US (occurrence: US)
  Receive Date: 20200224
  Receipt Date: 20210224
  Transmission Date: 20210419
  Serious: Yes (Hospitalization)
  Sender: FDA-Public Use
  Company Number: US-CELGENEUS-USA-20200206030

PATIENT
  Age: 80 Year
  Sex: Male
  Weight: 91 kg

DRUGS (16)
  1. CYTOXAN [Suspect]
     Active Substance: CYCLOPHOSPHAMIDE
     Indication: PLASMA CELL MYELOMA
     Dosage: 320 MILLIGRAM
     Route: 041
     Dates: start: 20130510, end: 20140313
  2. DECADRON [Suspect]
     Active Substance: DEXAMETHASONE
     Dosage: 10 MILLIGRAM
     Route: 041
     Dates: start: 20150728, end: 20160406
  3. KYPROLIS [Suspect]
     Active Substance: CARFILZOMIB
     Dosage: 20 MILLIGRAM/SQ. METER
     Route: 041
     Dates: start: 20150828, end: 20160406
  4. REVLIMID [Suspect]
     Active Substance: LENALIDOMIDE
     Indication: PLASMA CELL MYELOMA
     Dosage: 10 MILLIGRAM
     Route: 048
     Dates: start: 20150728, end: 20160406
  5. DARZALEX [Suspect]
     Active Substance: DARATUMUMAB
     Dosage: 16 MILLIGRAM/KILOGRAM
     Route: 041
     Dates: start: 20160707, end: 20190319
  6. KYPROLIS [Suspect]
     Active Substance: CARFILZOMIB
     Indication: PLASMA CELL MYELOMA
     Dosage: 20 MILLIGRAM/SQ. METER
     Route: 041
     Dates: start: 20140404, end: 20150616
  7. DARZALEX [Suspect]
     Active Substance: DARATUMUMAB
     Dosage: 16 MILLIGRAM/KILOGRAM
     Route: 041
     Dates: start: 20190409
  8. VELCADE [Suspect]
     Active Substance: BORTEZOMIB
     Indication: PLASMA CELL MYELOMA
     Dosage: 1.3 MILLIGRAM/SQ. METER
     Route: 058
     Dates: start: 20130510, end: 20140327
  9. DECADRON [Suspect]
     Active Substance: DEXAMETHASONE
     Indication: PLASMA CELL MYELOMA
     Dosage: 10 MILLIGRAM
     Route: 041
     Dates: start: 20130510, end: 20140313
  10. DECADRON [Suspect]
     Active Substance: DEXAMETHASONE
     Dosage: 10 MILLIGRAM
     Route: 041
     Dates: start: 20140404, end: 20150616
  11. DECADRON [Suspect]
     Active Substance: DEXAMETHASONE
     Dosage: 40 MILLIGRAM
     Route: 041
     Dates: start: 20190409
  12. CYTOXAN [Suspect]
     Active Substance: CYCLOPHOSPHAMIDE
     Dosage: 650 MILLIGRAM
     Route: 048
     Dates: start: 20190409
  13. DECADRON [Suspect]
     Active Substance: DEXAMETHASONE
     Dosage: 20 MILLIGRAM
     Route: 041
     Dates: start: 20160422, end: 20160423
  14. DECADRON [Suspect]
     Active Substance: DEXAMETHASONE
     Dosage: 12 MILLIGRAM
     Route: 041
     Dates: start: 20160513, end: 20190319
  15. DARZALEX [Suspect]
     Active Substance: DARATUMUMAB
     Indication: PLASMA CELL MYELOMA
     Dosage: 16 MILLIGRAM/KILOGRAM
     Route: 041
     Dates: start: 20160422, end: 20160617
  16. KYPROLIS [Suspect]
     Active Substance: CARFILZOMIB
     Dosage: 20 MILLIGRAM/SQ. METER
     Route: 041
     Dates: start: 20190409

REACTIONS (1)
  - Rhinovirus infection [Recovered/Resolved]

NARRATIVE: CASE EVENT DATE: 20191226
